FAERS Safety Report 21373300 (Version 1)
Quarter: 2022Q3

REPORT INFORMATION
  Report Type: Spontaneous
  Country: CA (occurrence: CA)
  Receive Date: 20220925
  Receipt Date: 20220925
  Transmission Date: 20221026
  Serious: Yes (Other)
  Sender: FDA-Public Use
  Company Number: CA-JNJFOC-20220947414

PATIENT
  Age: 75 Year
  Sex: Female
  Weight: 75 kg

DRUGS (1)
  1. REMICADE [Suspect]
     Active Substance: INFLIXIMAB
     Indication: Rheumatoid arthritis
     Route: 041

REACTIONS (6)
  - Lymphoma [Unknown]
  - Blood pressure fluctuation [Unknown]
  - Heart rate decreased [Unknown]
  - Off label use [Unknown]
  - Intentional product use issue [Unknown]
  - Inappropriate schedule of product administration [Unknown]
